FAERS Safety Report 8529548-5 (Version None)
Quarter: 2012Q2

REPORT INFORMATION
  Report Type: 
  Country: None (occurrence: None)
  Receive Date: 20120409
  Receipt Date: 20110516
  Transmission Date: 20120825
  Serious: Yes (Death)
  Sender: FDA-Public Use
  Company Number: 2011-200

PATIENT
  Age: 53 Year
  Sex: Male
  Weight: 122.9 kg

DRUGS (2)
  1. INVEGA [Concomitant]
  2. FAZACLO ODT [Suspect]
     Indication: SCHIZOPHRENIA, PARANOID TYPE
     Dosage: 200-400 MG, QD, ORAL
     Route: 048
     Dates: start: 20091125, end: 20110303

REACTIONS (1)
  - CARDIAC FAILURE CONGESTIVE [None]
